FAERS Safety Report 21914507 (Version 2)
Quarter: 2023Q1

REPORT INFORMATION
  Report Type: Report from Study
  Country: MX (occurrence: MX)
  Receive Date: 20230126
  Receipt Date: 20230127
  Transmission Date: 20230417
  Serious: Yes (Other)
  Sender: FDA-Public Use
  Company Number: MX-UCBSA-2023000956

PATIENT
  Sex: Male

DRUGS (4)
  1. VIMPAT [Suspect]
     Active Substance: LACOSAMIDE
     Indication: Epilepsy
     Dosage: 10 MILLILITER, 2X/DAY (BID)
     Route: 048
     Dates: start: 20210810, end: 20221024
  2. VIMPAT [Suspect]
     Active Substance: LACOSAMIDE
     Indication: Epilepsy
     Dosage: 100 MILLIGRAM
     Route: 048
     Dates: start: 20191121, end: 20210706
  3. KEPPRA XR [Concomitant]
     Active Substance: LEVETIRACETAM
     Indication: Epilepsy
     Dosage: 0.5 MILLILITER, 2X/DAY (BID) 100MG/ML
     Route: 065
     Dates: start: 20171108, end: 20221223
  4. KEPPRA XR [Concomitant]
     Active Substance: LEVETIRACETAM
     Dosage: 5 MILLILITER, 2X/DAY (BID)
     Route: 065

REACTIONS (6)
  - Gastrooesophageal reflux disease [Unknown]
  - Oesophageal pain [Unknown]
  - Dysphagia [Unknown]
  - Vomiting [Unknown]
  - Wrong technique in product usage process [Unknown]
  - Product availability issue [Unknown]

NARRATIVE: CASE EVENT DATE: 20220101
